FAERS Safety Report 18146670 (Version 1)
Quarter: 2020Q3

REPORT INFORMATION
  Report Type: Spontaneous
  Country: US (occurrence: US)
  Receive Date: 20200813
  Receipt Date: 20200813
  Transmission Date: 20201103
  Serious: No
  Sender: FDA-Public Use
  Company Number: US-RIGEL PHARMACEUTICALS, INC.-2020FOS000260

PATIENT
  Sex: Female
  Weight: 63.49 kg

DRUGS (2)
  1. TAVALISSE [Suspect]
     Active Substance: FOSTAMATINIB
     Indication: IMMUNE THROMBOCYTOPENIA
     Dosage: 150 MG, QD
     Route: 048
     Dates: start: 20181102
  2. TAVALISSE [Suspect]
     Active Substance: FOSTAMATINIB
     Indication: ANAEMIA VITAMIN B12 DEFICIENCY

REACTIONS (1)
  - Platelet count decreased [Unknown]
